FAERS Safety Report 6867598-5 (Version None)
Quarter: 2010Q3

REPORT INFORMATION
  Report Type: 
  Country: None (occurrence: None)
  Receive Date: 20100722
  Receipt Date: 20090707
  Transmission Date: 20110219
  Serious: No
  Sender: FDA-Public Use
  Company Number: US-BAUSCH-2009BL003321

PATIENT
  Age: 48 Year
  Sex: Female

DRUGS (1)
  1. OPCON-A [Suspect]
     Indication: EYE ALLERGY
     Route: 047
     Dates: start: 20090601, end: 20090601

REACTIONS (3)
  - DRUG ADMINISTRATION ERROR [None]
  - MYDRIASIS [None]
  - PHOTOPHOBIA [None]
